FAERS Safety Report 10922263 (Version 2)
Quarter: 2015Q1

REPORT INFORMATION
  Report Type: Report from Study
  Country: US (occurrence: US)
  Receive Date: 20150317
  Receipt Date: 20150330
  Transmission Date: 20150721
  Serious: Yes (Hospitalization)
  Sender: FDA-Public Use
  Company Number: US-ASTELLAS-2015US003501

PATIENT
  Age: 23 Year
  Sex: Male

DRUGS (8)
  1. TRIAMCINOLONE [Concomitant]
     Active Substance: TRIAMCINOLONE
     Indication: DERMATITIS ATOPIC
     Dosage: UNK UNK, UNKNOWN FREQ.
     Route: 065
  2. TACROLIMUS. [Suspect]
     Active Substance: TACROLIMUS
  3. DESONIDE. [Concomitant]
     Active Substance: DESONIDE
     Indication: DERMATITIS ATOPIC
     Dosage: UNK UNK, UNKNOWN FREQ.,4 TUBES OF 15 GRAMS
     Route: 065
  4. PREDNISOLONE. [Concomitant]
     Active Substance: PREDNISOLONE
     Indication: DERMATITIS ATOPIC
     Dosage: UNK UNK, UNKNOWN FREQ.
     Route: 048
  5. PREDNISONE. [Concomitant]
     Active Substance: PREDNISONE
     Indication: DERMATITIS ATOPIC
     Dosage: UNK UNK, UNKNOWN FREQ.
     Route: 048
  6. DOXEPIN [Concomitant]
     Active Substance: DOXEPIN
     Indication: DERMATITIS ATOPIC
     Dosage: UNK UNK, UNKNOWN FREQ.
     Route: 065
  7. TACROLIMUS. [Suspect]
     Active Substance: TACROLIMUS
     Indication: DERMATITIS ATOPIC
     Dosage: 100 UNK, UNKNOWN FREQ, LESS THAN 1 TUBE (100 G)
     Route: 061
     Dates: start: 2003
  8. HALOBETASOL PROPIONATE. [Concomitant]
     Active Substance: HALOBETASOL PROPIONATE
     Indication: DERMATITIS ATOPIC
     Dosage: UNK UNK, UNKNOWN FREQ.
     Route: 061

REACTIONS (1)
  - Viral infection [Recovered/Resolved]

NARRATIVE: CASE EVENT DATE: 201406
